FAERS Safety Report 5610724-6 (Version None)
Quarter: 2008Q1

REPORT INFORMATION
  Report Type: 
  Country: None (occurrence: None)
  Receive Date: 20080201
  Receipt Date: 20080121
  Transmission Date: 20080703
  Serious: Yes (Other)
  Sender: FDA-Public Use
  Company Number: PHHY2008JP00504

PATIENT
  Age: 8 Year
  Sex: Female

DRUGS (2)
  1. KETOTIFEN FUMARATE [Suspect]
     Route: 048
  2. ONON [Concomitant]

REACTIONS (2)
  - CONVULSION [None]
  - VOMITING [None]
